FAERS Safety Report 16863933 (Version 1)
Quarter: 2019Q3

REPORT INFORMATION
  Report Type: Report from Study
  Country: US (occurrence: US)
  Receive Date: 20190927
  Receipt Date: 20190927
  Transmission Date: 20191005
  Serious: Yes (Life-Threatening, Hospitalization, Disabling)
  Sender: FDA-Public Use
  Company Number: US-PFIZER INC-2019013962

PATIENT
  Age: 59 Year
  Sex: Female

DRUGS (4)
  1. SUTENT [Suspect]
     Active Substance: SUNITINIB MALATE
     Indication: GASTROINTESTINAL STROMAL TUMOUR
     Dosage: 50 MG, CYCLIC (DAILY 4 WEEKS ON, 2 WEEKS OFF)
     Route: 048
     Dates: start: 20181221, end: 20190222
  2. METOPROLOL. [Concomitant]
     Active Substance: METOPROLOL
     Indication: BLOOD PRESSURE INCREASED
     Dosage: 25 MG, DAILY
     Route: 048
     Dates: start: 20190114
  3. ASPIRIN 81 [Concomitant]
     Active Substance: ASPIRIN
     Dosage: UNK
  4. SUTENT [Suspect]
     Active Substance: SUNITINIB MALATE
     Dosage: 50 MG, CYCLIC (DAILY 4 WEEKS ON, 2 WEEKS OFF)
     Route: 048
     Dates: start: 20190315, end: 201909

REACTIONS (20)
  - Cerebrovascular accident [Recovered/Resolved with Sequelae]
  - Flushing [Unknown]
  - Nausea [Not Recovered/Not Resolved]
  - Decreased appetite [Not Recovered/Not Resolved]
  - Hypogeusia [Unknown]
  - Dermatitis contact [Recovered/Resolved]
  - Weight decreased [Not Recovered/Not Resolved]
  - Dry skin [Unknown]
  - Dry mouth [Unknown]
  - Hypothyroidism [Unknown]
  - Taste disorder [Not Recovered/Not Resolved]
  - Fatigue [Not Recovered/Not Resolved]
  - Night sweats [Recovering/Resolving]
  - Dyspepsia [Unknown]
  - Oral pain [Not Recovered/Not Resolved]
  - Hypertension [Not Recovered/Not Resolved]
  - Hepatic enzyme increased [Not Recovered/Not Resolved]
  - Stomatitis [Unknown]
  - Periorbital oedema [Unknown]
  - Blood cholesterol increased [Not Recovered/Not Resolved]

NARRATIVE: CASE EVENT DATE: 20190222
